FAERS Safety Report 25882277 (Version 2)
Quarter: 2025Q4

REPORT INFORMATION
  Report Type: Spontaneous
  Country: US (occurrence: US)
  Receive Date: 20251006
  Receipt Date: 20251028
  Transmission Date: 20260118
  Serious: No
  Sender: ROCHE
  Company Number: US-ROCHE-10000399906

PATIENT
  Age: 9 Year
  Sex: Male
  Weight: 43.8 kg

DRUGS (2)
  1. HEMLIBRA [Suspect]
     Active Substance: EMICIZUMAB-KXWH
     Indication: Factor VIII deficiency
     Dosage: STRENGTH: 60MG/0.4ML AND 12MG/0.4ML
     Route: 058
     Dates: start: 20250731
  2. NUWIQ [Concomitant]
     Active Substance: ANTIHEMOPHILIC FACTOR, HUMAN RECOMBINANT

REACTIONS (7)
  - Haemorrhage [Recovered/Resolved]
  - Tooth loss [Recovered/Resolved]
  - Gingival injury [Recovered/Resolved]
  - Mouth haemorrhage [Unknown]
  - Epistaxis [Unknown]
  - Haemarthrosis [Unknown]
  - Mucosal haemorrhage [Unknown]

NARRATIVE: CASE EVENT DATE: 20250913
